FAERS Safety Report 24979180 (Version 2)
Quarter: 2025Q2

REPORT INFORMATION
  Report Type: Report from Study
  Country: CA (occurrence: CA)
  Receive Date: 20250218
  Receipt Date: 20250402
  Transmission Date: 20250717
  Serious: Yes (Other)
  Sender: JOHNSON AND JOHNSON
  Company Number: CA-JNJFOC-20241109264

PATIENT
  Age: 51 Year
  Sex: Male
  Weight: 96 kg

DRUGS (9)
  1. REMICADE [Suspect]
     Active Substance: INFLIXIMAB
     Indication: Colitis ulcerative
     Route: 041
     Dates: start: 20221115
  2. REMICADE [Suspect]
     Active Substance: INFLIXIMAB
     Route: 041
     Dates: start: 20220114
  3. REMICADE [Suspect]
     Active Substance: INFLIXIMAB
     Dosage: 5VIALS
     Route: 041
     Dates: start: 20221115
  4. PANTOPRAZOLE [Concomitant]
     Active Substance: PANTOPRAZOLE
  5. PANTOPRAZOLE [Concomitant]
     Active Substance: PANTOPRAZOLE
  6. CANDESARTAN [Concomitant]
     Active Substance: CANDESARTAN
  7. EFFEXOR [Concomitant]
     Active Substance: VENLAFAXINE HYDROCHLORIDE
  8. CHOLECALCIFEROL [Concomitant]
     Active Substance: CHOLECALCIFEROL
  9. ATORVASTATIN [Concomitant]
     Active Substance: ATORVASTATIN

REACTIONS (7)
  - Respiratory tract infection [Not Recovered/Not Resolved]
  - Limb injury [Recovered/Resolved]
  - Influenza [Recovered/Resolved]
  - Weight decreased [Unknown]
  - Reflux laryngitis [Unknown]
  - Pharyngeal polyp [Unknown]
  - Epistaxis [Unknown]

NARRATIVE: CASE EVENT DATE: 20240101
